FAERS Safety Report 9675472 (Version 2)
Quarter: 2013Q4

REPORT INFORMATION
  Report Type: Spontaneous
  Country: DE (occurrence: DE)
  Receive Date: 20131107
  Receipt Date: 20131204
  Transmission Date: 20140711
  Serious: Yes (Death, Hospitalization)
  Sender: FDA-Public Use
  Company Number: DE-JNJFOC-20131102622

PATIENT
  Age: 87 Year
  Sex: Male
  Weight: 82 kg

DRUGS (9)
  1. XARELTO [Suspect]
     Indication: CEREBROVASCULAR ACCIDENT PROPHYLAXIS
     Route: 048
     Dates: start: 20130730, end: 20131006
  2. XARELTO [Suspect]
     Indication: CEREBROVASCULAR ACCIDENT PROPHYLAXIS
     Route: 048
  3. XARELTO [Suspect]
     Indication: ATRIAL FIBRILLATION
     Route: 048
  4. XARELTO [Suspect]
     Indication: ATRIAL FIBRILLATION
     Route: 048
     Dates: start: 20130730, end: 20131006
  5. METOPROLOL [Concomitant]
     Indication: HYPERTENSION
     Dosage: 50MG, 1-0-1/2
     Route: 065
     Dates: start: 2005
  6. RAMIPRIL [Concomitant]
     Indication: HYPERTENSION
     Route: 065
     Dates: start: 2005
  7. DIGITOXIN [Concomitant]
     Indication: ATRIAL FIBRILLATION
     Route: 065
     Dates: start: 2005
  8. FUROSEMID [Concomitant]
     Route: 065
     Dates: start: 2005
  9. HCT [Concomitant]
     Route: 065
     Dates: start: 20131007

REACTIONS (4)
  - Blood urea [Fatal]
  - Blood creatinine increased [Fatal]
  - Hypotension [Fatal]
  - Oedema peripheral [Fatal]
